FAERS Safety Report 4761769-X (Version None)
Quarter: 2005Q3

REPORT INFORMATION
  Report Type: 
  Country: None (occurrence: None)
  Receive Date: 20050826
  Receipt Date: 20050405
  Transmission Date: 20060218
  Serious: Yes (Other)
  Sender: FDA-Public Use
  Company Number: USA-2005-0019672

PATIENT
  Sex: Female

DRUGS (3)
  1. OXYCONTIN HYDROCHLORIDE (SIMILAR TO NDA 20-553) (OXYCODONE HYDROCHLORI [Suspect]
     Dosage: UNK MG
  2. TRAMADOL HCL [Suspect]
  3. ACETAMINOPHEN AND OXYCODONE HCL [Concomitant]

REACTIONS (1)
  - POLYSUBSTANCE ABUSE [None]
